FAERS Safety Report 11942532 (Version 1)
Quarter: 2016Q1

REPORT INFORMATION
  Report Type: Spontaneous
  Country: US (occurrence: US)
  Receive Date: 20160125
  Receipt Date: 20160125
  Transmission Date: 20160526
  Serious: No
  Sender: FDA-Public Use
  Company Number: US-UNITED THERAPEUTICS-UNT-2015-006161

PATIENT
  Age: 72 Year
  Sex: Male
  Weight: 64.85 kg

DRUGS (2)
  1. REMODULIN [Suspect]
     Active Substance: TREPROSTINIL
     Dosage: 0.028 ?G/KG/MIN,CONTINUING
     Route: 058
     Dates: start: 20150408
  2. REMODULIN [Suspect]
     Active Substance: TREPROSTINIL
     Indication: PULMONARY HYPERTENSION
     Dosage: 0.002 ?G/KG/MIN, CONTINUING
     Route: 058
     Dates: start: 20150403

REACTIONS (3)
  - Infusion site erythema [Unknown]
  - Infusion site discharge [Unknown]
  - Injection site discharge [Unknown]

NARRATIVE: CASE EVENT DATE: 20150702
